FAERS Safety Report 13608887 (Version 2)
Quarter: 2017Q3

REPORT INFORMATION
  Report Type: Report from Study
  Country: US (occurrence: US)
  Receive Date: 20170602
  Receipt Date: 20170717
  Transmission Date: 20171127
  Serious: Yes (Other)
  Sender: FDA-Public Use
  Company Number: PHEH2017US016312

PATIENT
  Sex: Female

DRUGS (1)
  1. RECLAST [Suspect]
     Active Substance: ZOLEDRONIC ACID
     Indication: PRODUCT USED FOR UNKNOWN INDICATION
     Dosage: UNK UNK, Q12MO
     Route: 065
     Dates: start: 20170512

REACTIONS (15)
  - Back pain [Unknown]
  - Malaise [Recovered/Resolved]
  - Nervous system disorder [Recovered/Resolved]
  - Head discomfort [Recovered/Resolved]
  - Gait inability [Recovered/Resolved]
  - Chills [Unknown]
  - Spinal disorder [Recovered/Resolved]
  - Muscle spasms [Recovered/Resolved]
  - Photopsia [Recovering/Resolving]
  - Pain in extremity [Unknown]
  - Pyrexia [Unknown]
  - Musculoskeletal discomfort [Recovered/Resolved]
  - Musculoskeletal pain [Unknown]
  - Limb discomfort [Recovered/Resolved]
  - Hypoaesthesia [Not Recovered/Not Resolved]
